FAERS Safety Report 6576415-2 (Version None)
Quarter: 2010Q1

REPORT INFORMATION
  Report Type: 
  Country: None (occurrence: None)
  Receive Date: 20100210
  Receipt Date: 20100202
  Transmission Date: 20100710
  Serious: Yes (Hospitalization, Other)
  Sender: FDA-Public Use
  Company Number: US-JNJFOC-20100101851

PATIENT
  Sex: Male

DRUGS (5)
  1. RISPERDAL [Suspect]
     Indication: AFFECTIVE DISORDER
     Dosage: RECENTLY DOSE TITRATED TO 0.25 MG 1 TABLET IN AM AND 2 TABLETS IN PM.
     Route: 048
  2. RISPERDAL [Suspect]
     Route: 048
  3. RISPERDAL [Suspect]
     Route: 048
  4. ADDERALL 30 [Concomitant]
     Indication: ATTENTION DEFICIT/HYPERACTIVITY DISORDER
     Route: 065
  5. CLONIDINE [Concomitant]
     Route: 065

REACTIONS (2)
  - DERMATITIS EXFOLIATIVE [None]
  - HOSPITALISATION [None]
